FAERS Safety Report 12323986 (Version 1)
Quarter: 2016Q2

REPORT INFORMATION
  Report Type: Spontaneous
  Country: US (occurrence: US)
  Receive Date: 20160502
  Receipt Date: 20160502
  Transmission Date: 20160815
  Serious: No
  Sender: FDA-Public Use
  Company Number: US-ABBVIE-15P-163-1437742-00

PATIENT
  Sex: Male
  Weight: 89.89 kg

DRUGS (3)
  1. MARIJUANA [Concomitant]
     Active Substance: CANNABIS SATIVA SUBSP. INDICA TOP
     Indication: PAIN
  2. ANDROGEL [Suspect]
     Active Substance: TESTOSTERONE
     Indication: BLOOD TESTOSTERONE DECREASED
     Dosage: 2 PUMPS (PRESCRIBED BUT SOMETIMES DOSES 1-2)
     Route: 061
     Dates: start: 2012, end: 201506
  3. AXERON [Concomitant]
     Indication: BLOOD TESTOSTERONE DECREASED
     Dates: start: 201506

REACTIONS (2)
  - Lyme disease [Recovered/Resolved]
  - Drug level fluctuating [Not Recovered/Not Resolved]

NARRATIVE: CASE EVENT DATE: 2012
